FAERS Safety Report 8587233-8 (Version None)
Quarter: 2012Q3

REPORT INFORMATION
  Report Type: 
  Country: None (occurrence: None)
  Receive Date: 20120810
  Receipt Date: 20110818
  Transmission Date: 20120928
  Serious: Yes (Other)
  Sender: FDA-Public Use
  Company Number: US-ASTRAZENECA-2011SE49551

PATIENT
  Age: 45 Year
  Sex: Female

DRUGS (5)
  1. ARIMIDEX [Suspect]
     Indication: BREAST CANCER
     Route: 048
     Dates: start: 20070101
  2. ZOCOR [Concomitant]
  3. PLAVIX [Concomitant]
  4. VITAMIN TAB [Concomitant]
  5. PAPVID [Concomitant]

REACTIONS (2)
  - DYSARTHRIA [None]
  - CEREBROVASCULAR ACCIDENT [None]
